FAERS Safety Report 15192156 (Version 1)
Quarter: 2018Q3

REPORT INFORMATION
  Report Type: Spontaneous
  Country: US (occurrence: US)
  Receive Date: 20180626
  Receipt Date: 20180626
  Transmission Date: 20181010
  Serious: Yes (Hospitalization, Other)
  Sender: FDA-Public Use
  Company Number: None

PATIENT
  Age: 49 Year
  Sex: Female
  Weight: 71.55 kg

DRUGS (2)
  1. FLUTICASONE PROPIONATE NASAL SPRAY [Suspect]
     Active Substance: FLUTICASONE PROPIONATE
     Indication: PRODUCT USED FOR UNKNOWN INDICATION
     Dosage: ?          QUANTITY:1 SPRAY(S);?
     Route: 055
     Dates: start: 20180501, end: 20180626
  2. EAR DROPS [Concomitant]

REACTIONS (4)
  - Alopecia [None]
  - Oropharyngeal pain [None]
  - Product use issue [None]
  - Instillation site haemorrhage [None]

NARRATIVE: CASE EVENT DATE: 20180501
